FAERS Safety Report 17786119 (Version 4)
Quarter: 2024Q2

REPORT INFORMATION
  Report Type: Report from Study
  Country: GB (occurrence: US)
  Receive Date: 20200513
  Receipt Date: 20240525
  Transmission Date: 20240716
  Serious: Yes (Hospitalization)
  Sender: FDA-Public Use
  Company Number: GB-ABBVIE-20K-167-3393686-00

PATIENT
  Age: 15 Year
  Sex: Female

DRUGS (12)
  1. HUMIRA [Suspect]
     Active Substance: ADALIMUMAB
     Indication: Crohn^s disease
     Dosage: ONE OFF DOSE
     Route: 058
     Dates: start: 20141223, end: 20141223
  2. HUMIRA [Suspect]
     Active Substance: ADALIMUMAB
     Route: 058
     Dates: start: 20150103, end: 20180116
  3. HUMIRA [Suspect]
     Active Substance: ADALIMUMAB
     Dosage: ONE OFF DOSE , LOADING DOSE ONCE
     Route: 058
     Dates: start: 20191008, end: 20191008
  4. HUMIRA [Suspect]
     Active Substance: ADALIMUMAB
     Dosage: ONE OFF DOSE , LOADING DOSE ONCE
     Route: 058
     Dates: start: 20190822, end: 20190822
  5. HUMIRA [Suspect]
     Active Substance: ADALIMUMAB
     Dosage: ONE OFF DOSE , LOADING DOSE
     Route: 058
     Dates: start: 20191105
  6. HUMIRA [Suspect]
     Active Substance: ADALIMUMAB
     Route: 058
     Dates: start: 20180116, end: 20180628
  7. METHOTREXATE [Suspect]
     Active Substance: METHOTREXATE
     Indication: Crohn^s disease
     Route: 048
     Dates: start: 20171207, end: 20180418
  8. METHOTREXATE [Suspect]
     Active Substance: METHOTREXATE
     Indication: Crohn^s disease
     Route: 058
     Dates: start: 20150116, end: 20151229
  9. METHOTREXATE [Suspect]
     Active Substance: METHOTREXATE
     Indication: Crohn^s disease
     Route: 058
     Dates: start: 20170126, end: 201705
  10. METHOTREXATE [Suspect]
     Active Substance: METHOTREXATE
     Indication: Crohn^s disease
     Route: 048
     Dates: start: 20170510, end: 20171206
  11. METHOTREXATE [Suspect]
     Active Substance: METHOTREXATE
     Indication: Crohn^s disease
     Route: 058
     Dates: start: 20150306, end: 201505
  12. CALCIUM\CHOLECALCIFEROL [Concomitant]
     Active Substance: CALCIUM\CHOLECALCIFEROL
     Indication: Bone disorder
     Route: 048
     Dates: start: 201810

REACTIONS (1)
  - Small intestinal obstruction [Recovered/Resolved]

NARRATIVE: CASE EVENT DATE: 20200201
